FAERS Safety Report 6644899-7 (Version None)
Quarter: 2010Q1

REPORT INFORMATION
  Report Type: 
  Country: None (occurrence: None)
  Receive Date: 20100317
  Receipt Date: 20100127
  Transmission Date: 20100710
  Serious: Yes (Hospitalization)
  Sender: FDA-Public Use
  Company Number: AUR-APL-2010-00577

PATIENT
  Age: 63 Year
  Sex: Female
  Weight: 70 kg

DRUGS (7)
  1. MELOXICAM [Suspect]
     Indication: OSTEOARTHRITIS
     Dosage: 15MG, DAILY, ORAL
     Route: 048
     Dates: start: 20091111, end: 20100107
  2. DICLOFENAC SODIUM [Suspect]
     Indication: OSTEOARTHRITIS
     Dosage: 75MG, BID, ORAL
     Route: 048
     Dates: start: 20090915, end: 20091110
  3. BONIVA [Concomitant]
  4. ZOCOR [Concomitant]
  5. NASONEX [Concomitant]
  6. ALLEGRA [Concomitant]
  7. MULTI-VITAMINS [Concomitant]

REACTIONS (4)
  - GAIT DISTURBANCE [None]
  - GROIN PAIN [None]
  - NO THERAPEUTIC RESPONSE [None]
  - TREATMENT FAILURE [None]
